FAERS Safety Report 9161009 (Version 1)
Quarter: 2013Q1

REPORT INFORMATION
  Report Type: Spontaneous
  Country: FR (occurrence: FR)
  Receive Date: 20130313
  Receipt Date: 20130313
  Transmission Date: 20140127
  Serious: Yes (Hospitalization)
  Sender: FDA-Public Use
  Company Number: FR-VERTEX PHARMACEUTICALS INC.-2013-003445

PATIENT
  Age: 70 None
  Sex: Female
  Weight: 84 kg

DRUGS (10)
  1. INCIVO [Suspect]
     Indication: HEPATITIS C
     Dosage: 2 DF, 3 TIMES A DAY.
     Route: 048
     Dates: start: 20121024, end: 20130109
  2. NEORECORMON [Suspect]
     Indication: APLASTIC ANAEMIA
     Dosage: DOSAGE FORM: INJECTION, 2 INJECTIONS PER WEEK
     Route: 058
     Dates: start: 20121219, end: 20130113
  3. NEORECORMON [Suspect]
     Dosage: DOSAGE FORM: INJECTION
     Route: 058
     Dates: start: 20121121, end: 20121218
  4. PEGASYS [Concomitant]
     Indication: HEPATITIS C
     Dosage: DOSAGE FORM: UNSPECIFIED
     Route: 065
     Dates: start: 20121114
  5. PEGASYS [Concomitant]
     Dosage: DOSAGE FORM: UNSPECIFIED
     Route: 065
     Dates: start: 20121024, end: 20121113
  6. REBETOL [Concomitant]
     Indication: HEPATITIS C
     Dosage: DOSAGE FORM: TABLETS, 1 TABLET A DAY (1-0-0) OF 200 MG
     Route: 065
     Dates: start: 20130109
  7. REBETOL [Concomitant]
     Dosage: DOSAGE FORM: TABLETS, 5 TABLETS A DAY (3-0-2) OF 200 MG
     Route: 065
     Dates: start: 20121114, end: 20121120
  8. REBETOL [Concomitant]
     Dosage: DOSAGE FORM: TABLETS, 6 TABLETS A DAY (3-0-3) OF 200 MG
     Route: 065
     Dates: start: 20121024, end: 20121113
  9. REBETOL [Concomitant]
     Dosage: DOSAGE FORM: TABLETS, 2 TABLETS A DAY (1-0-1) OF 200 MG
     Route: 065
     Dates: start: 20121121, end: 20130108
  10. LEVOTHYROX [Concomitant]
     Indication: PRODUCT USED FOR UNKNOWN INDICATION
     Dosage: DOSAGE FORM: UNSPECIFIED, LEVOTHYROX 50 MCG, THE DOSAGE IS 62 MCG PER DAY
     Route: 065

REACTIONS (2)
  - Eosinophilia [Recovered/Resolved]
  - Toxic skin eruption [Recovered/Resolved]
